FAERS Safety Report 22066432 (Version 1)
Quarter: 2023Q1

REPORT INFORMATION
  Report Type: Spontaneous
  Country: US (occurrence: None)
  Receive Date: 20230306
  Receipt Date: 20230306
  Transmission Date: 20230418
  Serious: No
  Sender: FDA-Public Use
  Company Number: None

PATIENT
  Age: 58 Year
  Sex: Female

DRUGS (1)
  1. ENBREL [Suspect]
     Active Substance: ETANERCEPT
     Dosage: 50MG OTHER  SUBCUTANEOUS?
     Route: 058

REACTIONS (3)
  - Gastrointestinal infection [None]
  - Respiratory tract infection [None]
  - Therapy interrupted [None]

NARRATIVE: CASE EVENT DATE: 20230211
